FAERS Safety Report 8036632-1 (Version None)
Quarter: 2012Q1

REPORT INFORMATION
  Report Type: 
  Country: None (occurrence: None)
  Receive Date: 20120106
  Receipt Date: 20111229
  Transmission Date: 20120608
  Serious: Yes (Other)
  Sender: FDA-Public Use
  Company Number: AUR-APL-2011-05988

PATIENT
  Age: 59 Year
  Sex: Male
  Weight: 53 kg

DRUGS (5)
  1. FOSRENOL [Concomitant]
  2. INSULIN [Concomitant]
  3. GABAPENTIN [Suspect]
     Indication: NEUROPATHY PERIPHERAL
     Dosage: 300 MG (100 MG, 3 IN 1 D), ORAL
     Route: 048
  4. COREG [Concomitant]
  5. RENAVITE (RENAVIT) [Concomitant]

REACTIONS (7)
  - CONFUSIONAL STATE [None]
  - BLINDNESS [None]
  - SOMNOLENCE [None]
  - EYE DISORDER [None]
  - EYELID FUNCTION DISORDER [None]
  - DYSKINESIA [None]
  - MEMORY IMPAIRMENT [None]
